FAERS Safety Report 6037819-X (Version None)
Quarter: 2009Q1

REPORT INFORMATION
  Report Type: 
  Country: None (occurrence: None)
  Receive Date: 20090113
  Receipt Date: 20090105
  Transmission Date: 20090719
  Serious: Yes (Death)
  Sender: FDA-Public Use
  Company Number: DSA_32979_2009

PATIENT
  Age: 50 Year
  Sex: Male
  Weight: 105 kg

DRUGS (7)
  1. CARDIZEM [Suspect]
     Dosage: NOT THE PRESCRIBED AMOUNT
  2. COVERSYL /00790701/ (COVERSYL) [Suspect]
     Dosage: NOT THE PRESCRIBED AMOUNT
  3. FLECAINIDE ACETATE [Suspect]
  4. DIGOXIN [Concomitant]
  5. FLUVOXAMINE MALEATE [Concomitant]
  6. VENTOLIN [Concomitant]
  7. WARFARIN [Concomitant]

REACTIONS (2)
  - COMPLETED SUICIDE [None]
  - OVERDOSE [None]
